FAERS Safety Report 18480051 (Version 2)
Quarter: 2021Q1

REPORT INFORMATION
  Report Type: Spontaneous
  Country: GB (occurrence: GB)
  Receive Date: 20201109
  Receipt Date: 20210120
  Transmission Date: 20210419
  Serious: Yes (Other)
  Sender: FDA-Public Use
  Company Number: GB-ELI_LILLY_AND_COMPANY-GB202011000415

PATIENT
  Sex: Male

DRUGS (3)
  1. ZYPADHERA [Suspect]
     Active Substance: OLANZAPINE PAMOATE
     Indication: PRODUCT USED FOR UNKNOWN INDICATION
     Dosage: UNK UNK, OTHER (EVERY TWO WEEKS)
     Route: 030
     Dates: start: 2015
  2. ZYPADHERA [Suspect]
     Active Substance: OLANZAPINE PAMOATE
     Indication: PRODUCT USED FOR UNKNOWN INDICATION
     Dosage: UNK UNK, OTHER (EVERY TWO WEEKS)
     Route: 030
     Dates: start: 2015
  3. ZYPADHERA [Suspect]
     Active Substance: OLANZAPINE PAMOATE
     Indication: PRODUCT USED FOR UNKNOWN INDICATION
     Dosage: UNK UNK, OTHER (EVERY TWO WEEKS)
     Route: 030
     Dates: start: 2015

REACTIONS (4)
  - Post-injection delirium sedation syndrome [Unknown]
  - Somnolence [Unknown]
  - Unresponsive to stimuli [Unknown]
  - Gait disturbance [Unknown]
